FAERS Safety Report 16065479 (Version 1)
Quarter: 2019Q1

REPORT INFORMATION
  Report Type: Spontaneous
  Country: US (occurrence: US)
  Receive Date: 20190212
  Receipt Date: 20190212
  Transmission Date: 20190418
  Serious: Yes (Death)
  Sender: FDA-Public Use
  Company Number: None

PATIENT
  Age: 76 Year
  Sex: Female
  Weight: 97.3 kg

DRUGS (1)
  1. YESCARTA [Suspect]
     Active Substance: AXICABTAGENE CILOLEUCEL
     Indication: DIFFUSE LARGE B-CELL LYMPHOMA
     Dosage: :2X10^8 AUTO CAR T; ONCE IV?
     Route: 042
     Dates: start: 20181210

REACTIONS (7)
  - CAR T-cell-related encephalopathy syndrome [None]
  - Urinary tract infection [None]
  - Enterococcal infection [None]
  - Status epilepticus [None]
  - Cytokine release syndrome [None]
  - Culture urine positive [None]
  - Deep vein thrombosis [None]

NARRATIVE: CASE EVENT DATE: 20190131
